FAERS Safety Report 9975350 (Version 1)
Quarter: 2014Q1

REPORT INFORMATION
  Report Type: Report from Study
  Country: US (occurrence: US)
  Receive Date: 20140306
  Receipt Date: 20140306
  Transmission Date: 20141002
  Serious: No
  Sender: FDA-Public Use
  Company Number: US-ABBVIE-13P-163-1155529-00

PATIENT
  Age: 59 Year
  Sex: Female

DRUGS (7)
  1. HUMIRA [Suspect]
     Indication: PSORIATIC ARTHROPATHY
     Dates: start: 20130726, end: 20130911
  2. LEVOXYL [Concomitant]
     Indication: THYROID DISORDER
  3. ATENOLOL [Concomitant]
     Indication: HYPERTENSION
  4. DONNATAL [Concomitant]
     Indication: IRRITABLE BOWEL SYNDROME
  5. GABAPENTIN [Concomitant]
     Indication: NEUROPATHY PERIPHERAL
  6. PROTONIX [Concomitant]
     Indication: NAUSEA
  7. PREDNISONE [Concomitant]
     Indication: SWELLING

REACTIONS (2)
  - Psoriasis [Not Recovered/Not Resolved]
  - Drug ineffective [Unknown]
